FAERS Safety Report 10749385 (Version 2)
Quarter: 2015Q3

REPORT INFORMATION
  Report Type: Spontaneous
  Country: US (occurrence: US)
  Receive Date: 20150129
  Receipt Date: 20150828
  Transmission Date: 20151125
  Serious: Yes (Hospitalization, Other)
  Sender: FDA-Public Use
  Company Number: US-ASTRAZENECA-2015SE06964

PATIENT
  Sex: Female

DRUGS (9)
  1. ACNE MEDICATION [Suspect]
     Active Substance: UNSPECIFIED INGREDIENT
     Route: 061
  2. LOTION [Suspect]
     Active Substance: COSMETICS
     Route: 065
  3. ORLISTAT [Suspect]
     Active Substance: ORLISTAT
     Indication: WEIGHT DECREASED
     Route: 048
     Dates: start: 20140916
  4. SEROQUEL [Suspect]
     Active Substance: QUETIAPINE FUMARATE
     Indication: BIPOLAR DISORDER
     Route: 048
  5. DEPAKOTE [Suspect]
     Active Substance: DIVALPROEX SODIUM
     Route: 065
  6. CLEOMYCIN [Suspect]
     Active Substance: CLEOMYCIN B2
     Route: 065
  7. REMERON [Suspect]
     Active Substance: MIRTAZAPINE
     Route: 065
  8. KATHREX [Suspect]
     Active Substance: SULFAMETHOXAZOLE\TRIMETHOPRIM
     Route: 065
  9. KLONOPIN [Suspect]
     Active Substance: CLONAZEPAM
     Route: 065

REACTIONS (44)
  - Dementia [Not Recovered/Not Resolved]
  - Muscle atrophy [Not Recovered/Not Resolved]
  - Impaired healing [Not Recovered/Not Resolved]
  - Self-injurious ideation [Not Recovered/Not Resolved]
  - Anosmia [Not Recovered/Not Resolved]
  - Muscular weakness [Not Recovered/Not Resolved]
  - Ear disorder [Not Recovered/Not Resolved]
  - Foot deformity [Not Recovered/Not Resolved]
  - Mental disorder [Not Recovered/Not Resolved]
  - Nervous system disorder [Not Recovered/Not Resolved]
  - Muscle disorder [Not Recovered/Not Resolved]
  - Skin discolouration [Not Recovered/Not Resolved]
  - Weight increased [Not Recovered/Not Resolved]
  - Cerebrovascular accident [Not Recovered/Not Resolved]
  - Seizure [Not Recovered/Not Resolved]
  - Gait disturbance [Not Recovered/Not Resolved]
  - Skin atrophy [Not Recovered/Not Resolved]
  - Coordination abnormal [Not Recovered/Not Resolved]
  - Furuncle [Not Recovered/Not Resolved]
  - Hypoaesthesia [Not Recovered/Not Resolved]
  - Malaise [Not Recovered/Not Resolved]
  - Insomnia [Not Recovered/Not Resolved]
  - Skin disorder [Not Recovered/Not Resolved]
  - Abdominal distension [Not Recovered/Not Resolved]
  - Sinusitis [Not Recovered/Not Resolved]
  - Gastrooesophageal reflux disease [Not Recovered/Not Resolved]
  - Hallucination [Not Recovered/Not Resolved]
  - Limb deformity [Not Recovered/Not Resolved]
  - Adverse event [Not Recovered/Not Resolved]
  - Dyspnoea [Not Recovered/Not Resolved]
  - Headache [Not Recovered/Not Resolved]
  - Sinus disorder [Not Recovered/Not Resolved]
  - Faeces pale [Not Recovered/Not Resolved]
  - Fall [Not Recovered/Not Resolved]
  - Dyskinesia [Not Recovered/Not Resolved]
  - Lyme disease [Not Recovered/Not Resolved]
  - Photophobia [Not Recovered/Not Resolved]
  - Anal haemorrhage [Not Recovered/Not Resolved]
  - Dry skin [Not Recovered/Not Resolved]
  - Nasal discomfort [Not Recovered/Not Resolved]
  - Skin tightness [Not Recovered/Not Resolved]
  - Wound [Not Recovered/Not Resolved]
  - Swelling face [Not Recovered/Not Resolved]
  - Neuropathy peripheral [Not Recovered/Not Resolved]
